FAERS Safety Report 12389402 (Version 1)
Quarter: 2016Q2

REPORT INFORMATION
  Report Type: Spontaneous
  Country: US (occurrence: None)
  Receive Date: 20160519
  Receipt Date: 20160519
  Transmission Date: 20160815
  Serious: Yes (Death, Hospitalization)
  Sender: FDA-Public Use
  Company Number: None

PATIENT
  Age: 2 Year
  Sex: Female
  Weight: 10.74 kg

DRUGS (6)
  1. DEXAMETHASONE. [Suspect]
     Active Substance: DEXAMETHASONE
     Dates: end: 20160430
  2. ERWINIA ASPARAGINASE [Suspect]
     Active Substance: ASPARAGINASE ERWINIA CHRYSANTHEMI
     Dates: end: 20160408
  3. LEUCOVORIN CALCIUM. [Suspect]
     Active Substance: LEUCOVORIN CALCIUM
     Dates: end: 20160415
  4. METHOTREXATE [Suspect]
     Active Substance: METHOTREXATE
     Dates: end: 20160412
  5. CYTARABINE. [Suspect]
     Active Substance: CYTARABINE
     Dates: end: 20160404
  6. VINCRISTINE SULFATE. [Suspect]
     Active Substance: VINCRISTINE SULFATE
     Dates: end: 20160419

REACTIONS (15)
  - Colitis [None]
  - Drug dose omission [None]
  - Mesenteric vein thrombosis [None]
  - Intestinal ischaemia [None]
  - Haematochezia [None]
  - Lethargy [None]
  - Hypoxia [None]
  - Intussusception [None]
  - Pancreatic infarction [None]
  - Fungal infection [None]
  - Acidosis [None]
  - Gastrointestinal necrosis [None]
  - Pyrexia [None]
  - Hepatic ischaemia [None]
  - Mesenteric vascular insufficiency [None]

NARRATIVE: CASE EVENT DATE: 20160501
